FAERS Safety Report 10327487 (Version 3)
Quarter: 2014Q3

REPORT INFORMATION
  Report Type: Spontaneous
  Country: AR (occurrence: AR)
  Receive Date: 20140721
  Receipt Date: 20140725
  Transmission Date: 20150326
  Serious: No
  Sender: FDA-Public Use
  Company Number: AR-AMGEN INC.-ARGSP2014039489

PATIENT
  Age: 66 Year
  Sex: Female

DRUGS (1)
  1. ENBREL [Suspect]
     Active Substance: ETANERCEPT
     Indication: RHEUMATOID ARTHRITIS
     Dosage: 50 MG, WEEKLY
     Route: 065
     Dates: start: 20111107, end: 201312

REACTIONS (3)
  - Benign neoplasm of thyroid gland [Unknown]
  - Antinuclear antibody increased [Not Recovered/Not Resolved]
  - Uterine polyp [Unknown]

NARRATIVE: CASE EVENT DATE: 20140520
